FAERS Safety Report 10183540 (Version 1)
Quarter: 2014Q2

REPORT INFORMATION
  Report Type: Spontaneous
  Country: US (occurrence: None)
  Receive Date: 20140425
  Receipt Date: 20140425
  Transmission Date: 20141212
  Serious: No
  Sender: FDA-Public Use
  Company Number: AP356-00413-SPO-US

PATIENT
  Age: 41 Year
  Sex: Female
  Weight: 104.3 kg

DRUGS (1)
  1. BELVIQ (LOCASERIN HYDROCHLORIDE) [Suspect]
     Indication: PRODUCT USED FOR UNKNOWN INDICATION
     Route: 048
     Dates: start: 20130625, end: 20130723

REACTIONS (1)
  - Weight increased [None]
